FAERS Safety Report 18730320 (Version 1)
Quarter: 2021Q1

REPORT INFORMATION
  Report Type: Spontaneous
  Country: US (occurrence: US)
  Receive Date: 20210112
  Receipt Date: 20210112
  Transmission Date: 20210419
  Serious: No
  Sender: FDA-Public Use
  Company Number: US-INTRA-CELLULAR THERAPIES, INC.-2020ICT00160

PATIENT
  Sex: Male

DRUGS (2)
  1. CAPLYTA [Suspect]
     Active Substance: LUMATEPERONE
     Indication: SCHIZOAFFECTIVE DISORDER
     Dosage: 42 MG, 1X/DAY
     Route: 048
  2. CAPLYTA [Suspect]
     Active Substance: LUMATEPERONE
     Dosage: 42 MG, 1X/DAY ^TOWARD NIGHTTIME^
     Route: 048

REACTIONS (2)
  - Off label use [Not Recovered/Not Resolved]
  - Fatigue [Unknown]
